FAERS Safety Report 16881619 (Version 1)
Quarter: 2019Q4

REPORT INFORMATION
  Report Type: Report from Study
  Country: US (occurrence: US)
  Receive Date: 20191003
  Receipt Date: 20191003
  Transmission Date: 20200122
  Serious: Yes (Other)
  Sender: FDA-Public Use
  Company Number: US-UCBSA-2019041196

PATIENT
  Age: 62 Year
  Sex: Female

DRUGS (1)
  1. LACOSAMIDE. [Suspect]
     Active Substance: LACOSAMIDE
     Indication: SEIZURE
     Dosage: 50 MILLIGRAM, 2X/DAY (BID)

REACTIONS (3)
  - Cervical vertebral fracture [Not Recovered/Not Resolved]
  - Seizure [Unknown]
  - Facial bones fracture [Not Recovered/Not Resolved]

NARRATIVE: CASE EVENT DATE: 20190830
